FAERS Safety Report 25503192 (Version 1)
Quarter: 2025Q3

REPORT INFORMATION
  Report Type: Report from Study
  Country: CN (occurrence: CN)
  Receive Date: 20250702
  Receipt Date: 20250702
  Transmission Date: 20251021
  Serious: Yes (Death)
  Sender: ROCHE
  Company Number: CN-ROCHE-10000325554

PATIENT
  Age: 58 Year
  Sex: Male

DRUGS (1)
  1. TECENTRIQ [Suspect]
     Active Substance: ATEZOLIZUMAB
     Indication: Small cell lung cancer
     Dosage: 1200MG/20ML/VIAL
     Route: 042
     Dates: start: 20250208

REACTIONS (1)
  - Disease progression [Fatal]
